FAERS Safety Report 17366114 (Version 19)
Quarter: 2021Q2

REPORT INFORMATION
  Report Type: Spontaneous
  Country: US (occurrence: US)
  Receive Date: 20200204
  Receipt Date: 20210505
  Transmission Date: 20210716
  Serious: No
  Sender: FDA-Public Use
  Company Number: US-PFIZER INC-2019363823

PATIENT
  Age: 47 Year
  Sex: Male
  Weight: 73 kg

DRUGS (5)
  1. DETROL LA [Suspect]
     Active Substance: TOLTERODINE TARTRATE
     Indication: BLADDER DISORDER
     Dosage: 4 MG, UNK (QUANTITY FOR 90 DAYS: 180)
  2. DETROL LA [Suspect]
     Active Substance: TOLTERODINE TARTRATE
     Dosage: 4 MG, 2X/DAY (4 MG, TWICE A DAY)
     Route: 048
  3. DETROL LA [Suspect]
     Active Substance: TOLTERODINE TARTRATE
     Indication: NEUROGENIC BLADDER
     Dosage: 4 MG, 2X/DAY (4 MG, TWICE DAILY)
  4. DETROL LA [Suspect]
     Active Substance: TOLTERODINE TARTRATE
     Dosage: 4 MG, 2X/DAY (4 MG, TWICE A DAY)
     Route: 048
  5. DETROL LA [Suspect]
     Active Substance: TOLTERODINE TARTRATE
     Dosage: 2 MG, DAILY

REACTIONS (6)
  - Product prescribing error [Unknown]
  - Infection [Unknown]
  - Frustration tolerance decreased [Unknown]
  - Product dispensing error [Unknown]
  - Drug ineffective [Unknown]
  - Off label use [Unknown]
